FAERS Safety Report 26121599 (Version 1)
Quarter: 2025Q4

REPORT INFORMATION
  Report Type: Spontaneous
  Country: US (occurrence: None)
  Receive Date: 20251203
  Receipt Date: 20251203
  Transmission Date: 20260118
  Serious: Yes (Hospitalization)
  Sender: FDA-CTU
  Company Number: None

PATIENT
  Age: 54 Year
  Sex: Female

DRUGS (1)
  1. CARVYKTI [Suspect]
     Active Substance: CILTACABTAGENE AUTOLEUCEL
     Indication: Plasma cell myeloma
     Dates: start: 20251028, end: 20251028

REACTIONS (3)
  - Immune effector cell-associated neurotoxicity syndrome [None]
  - Parkinson^s disease [None]
  - Flat affect [None]

NARRATIVE: CASE EVENT DATE: 20251110
